FAERS Safety Report 7027289-7 (Version None)
Quarter: 2010Q3

REPORT INFORMATION
  Report Type: 
  Country: None (occurrence: None)
  Receive Date: 20100930
  Receipt Date: 20100923
  Transmission Date: 20110219
  Serious: Yes (Other)
  Sender: FDA-Public Use
  Company Number: 2010SP050936

PATIENT
  Age: 85 Year
  Sex: Male

DRUGS (11)
  1. DESLORATADINE [Suspect]
     Dosage: 5 MG;QD;PO
     Route: 048
  2. ESTRACYT (ESTRAMUSTINE) (ESTRAMUSTINE PHOSPHATE) [Suspect]
     Indication: PROSTATE CANCER
     Dosage: 140 MG;QD;PO
     Route: 048
     Dates: start: 20100101
  3. CAPTOPRIL [Suspect]
     Indication: HYPERTENSION
     Dosage: 50 MG;TID;PO
     Route: 048
     Dates: end: 20100601
  4. GABAPENTIN [Suspect]
     Indication: PRODUCT USED FOR UNKNOWN INDICATION
     Dosage: 100 MG;TID;PO
     Route: 048
  5. ATORVASTATIN CALCIUM [Suspect]
     Indication: PRODUCT USED FOR UNKNOWN INDICATION
     Dosage: 80 MG;QD;PO
     Route: 048
  6. INDAPAMIDE [Suspect]
     Indication: HYPERTENSION
     Dosage: 1.5 MG;QD;PO
     Route: 048
  7. ACARBOSE [Suspect]
     Indication: DIABETES MELLITUS
     Dosage: 50 MG;TID;PO
     Route: 048
  8. REPAGLINIDE [Suspect]
     Indication: DIABETES MELLITUS
     Dosage: 4 MG;TID;PO
     Route: 048
  9. DILTIAZEM [Suspect]
     Indication: PRODUCT USED FOR UNKNOWN INDICATION
     Dosage: 300 MG;QD;PO
     Route: 048
  10. ALLOPURINOL [Suspect]
     Indication: PRODUCT USED FOR UNKNOWN INDICATION
     Dosage: 200 MG;QD;PO
     Route: 048
  11. LANTUS [Suspect]
     Indication: DIABETES MELLITUS
     Dosage: 18 IU;QAM;SC
     Route: 058

REACTIONS (1)
  - ANGIOEDEMA [None]
